FAERS Safety Report 14385253 (Version 2)
Quarter: 2019Q2

REPORT INFORMATION
  Report Type: Spontaneous
  Country: US (occurrence: US)
  Receive Date: 20180115
  Receipt Date: 20190613
  Transmission Date: 20190711
  Serious: Yes (Other)
  Sender: FDA-Public Use
  Company Number: US-SA-2016SA223060

PATIENT
  Age: 49 Year
  Sex: Female
  Weight: 73.9 kg

DRUGS (21)
  1. PARACETAMOL [Concomitant]
     Active Substance: ACETAMINOPHEN
  2. CARBOPLATIN. [Concomitant]
     Active Substance: CARBOPLATIN
  3. ALBUTEROL [SALBUTAMOL] [Concomitant]
     Active Substance: ALBUTEROL
  4. HYDROXYCHLOROQUINE PHOSPHATE [Concomitant]
     Active Substance: HYDROXYCHLOROQUINE DIPHOSPHATE
     Dosage: UNK UNK,UNK
     Route: 065
     Dates: start: 20041231
  5. TAXOTERE [Suspect]
     Active Substance: DOCETAXEL
     Dosage: UNK UNK,Q3W
     Route: 042
     Dates: start: 20120530, end: 20120530
  6. TAMOXIFEN [Concomitant]
     Active Substance: TAMOXIFEN
     Dosage: UNK UNK,UNK
     Route: 065
     Dates: start: 2013
  7. IRON DEXTRAN [Concomitant]
     Active Substance: IRON DEXTRAN
     Dosage: UNK UNK,UNK
     Route: 065
     Dates: start: 20111220
  8. HERCEPTIN [Concomitant]
     Active Substance: TRASTUZUMAB
  9. ESOMEPRAZOLE. [Concomitant]
     Active Substance: ESOMEPRAZOLE MAGNESIUM
  10. TAXOTERE [Suspect]
     Active Substance: DOCETAXEL
     Indication: BREAST CANCER FEMALE
     Dosage: UNK UNK,Q3W
     Route: 042
     Dates: start: 20120217, end: 20120217
  11. IRON [Concomitant]
     Active Substance: IRON
     Dosage: UNK
     Dates: start: 20111220
  12. IPRATROPIUM BROMIDE. [Concomitant]
     Active Substance: IPRATROPIUM BROMIDE
  13. LOSARTAN. [Concomitant]
     Active Substance: LOSARTAN
     Dosage: UNK UNK,UNK
     Route: 065
     Dates: start: 20111201
  14. ENOXAPARIN [Concomitant]
     Active Substance: ENOXAPARIN
  15. ALOXI [Concomitant]
     Active Substance: PALONOSETRON HYDROCHLORIDE
  16. CANNABINOL [Concomitant]
     Active Substance: CANNABINOL
     Dosage: UNK UNK,UNK
     Route: 065
  17. MOBIC [Concomitant]
     Active Substance: MELOXICAM
  18. PREDNISONE. [Concomitant]
     Active Substance: PREDNISONE
     Dosage: UNK UNK,UNK
     Route: 065
     Dates: start: 20041231
  19. PARAPLATIN [Concomitant]
     Active Substance: CARBOPLATIN
  20. SODIUM FERRIC GLUCONATE COMPLEX. [Concomitant]
     Active Substance: SODIUM FERRIC GLUCONATE COMPLEX
  21. ZOFRAN [Concomitant]
     Active Substance: ONDANSETRON HYDROCHLORIDE

REACTIONS (6)
  - Anxiety [Unknown]
  - Impaired quality of life [Unknown]
  - Pain [Unknown]
  - Psychological trauma [Unknown]
  - Alopecia [Recovering/Resolving]
  - Emotional distress [Unknown]

NARRATIVE: CASE EVENT DATE: 2012
